FAERS Safety Report 18026059 (Version 2)
Quarter: 2020Q3

REPORT INFORMATION
  Report Type: Spontaneous
  Country: CN (occurrence: CN)
  Receive Date: 20200715
  Receipt Date: 20200727
  Transmission Date: 20201103
  Serious: Yes (Other)
  Sender: FDA-Public Use
  Company Number: CN-PFIZER INC-2020267540

PATIENT
  Age: 69 Year
  Sex: Male
  Weight: 61 kg

DRUGS (1)
  1. ZOLOFT [Suspect]
     Active Substance: SERTRALINE HYDROCHLORIDE
     Indication: ANXIETY DISORDER
     Dosage: 1 DF, 1X/DAY (1 TABLET)
     Route: 048
     Dates: start: 2009

REACTIONS (6)
  - Urinary tract infection [Recovered/Resolved]
  - Mental disorder [Recovering/Resolving]
  - Blood glucose increased [Unknown]
  - Foot fracture [Recovered/Resolved]
  - Haemorrhage urinary tract [Recovered/Resolved]
  - Feeling drunk [Unknown]

NARRATIVE: CASE EVENT DATE: 2014
